FAERS Safety Report 10211244 (Version 1)
Quarter: 2014Q2

REPORT INFORMATION
  Report Type: Spontaneous
  Country: US (occurrence: US)
  Receive Date: 20140602
  Receipt Date: 20140602
  Transmission Date: 20141212
  Serious: Yes (Other)
  Sender: FDA-Public Use
  Company Number: US-BAYER-2014-076857

PATIENT
  Age: 78 Year
  Sex: Female
  Weight: 73.47 kg

DRUGS (6)
  1. PHILLIPS^ MILK OF MAGNESIA LIQUID ORIGINAL [Suspect]
     Dosage: 2 TABLESPOON
     Route: 048
  2. DULCOLAX [DOCUSATE SODIUM] [Suspect]
     Dosage: 2 DF, UNK
  3. METFORMIN [Concomitant]
  4. HYDROCHLOROTHIAZIDE [Concomitant]
  5. CRESTOR [Concomitant]
  6. PERCOCET [Concomitant]
     Indication: PAIN

REACTIONS (4)
  - Diarrhoea [Recovered/Resolved]
  - Proctalgia [Not Recovered/Not Resolved]
  - Urinary incontinence [None]
  - Urinary tract infection [None]
